FAERS Safety Report 24770159 (Version 1)
Quarter: 2024Q4

REPORT INFORMATION
  Report Type: Spontaneous
  Country: US (occurrence: US)
  Receive Date: 20241224
  Receipt Date: 20241224
  Transmission Date: 20250114
  Serious: No
  Sender: Kenvue
  Company Number: US-KENVUE-20241108005

PATIENT
  Age: 46 Year
  Sex: Female

DRUGS (2)
  1. WOMENS ROGAINE UNSCENTED [Suspect]
     Active Substance: MINOXIDIL
     Indication: Alopecia
     Dosage: CAN 2. USE THE FOAM RECOMMENDED DOSE DAILY
     Route: 061
     Dates: start: 202411, end: 202411
  2. WOMENS ROGAINE UNSCENTED [Suspect]
     Active Substance: MINOXIDIL
     Dosage: CAN 1. USE THE FOAM RECOMMENDED DOSE DAILY
     Route: 061
     Dates: start: 202409

REACTIONS (18)
  - Application site exfoliation [Recovering/Resolving]
  - Scab [Recovering/Resolving]
  - Asthenia [Recovering/Resolving]
  - Throat irritation [Recovering/Resolving]
  - Nausea [Recovering/Resolving]
  - Rash [Recovering/Resolving]
  - Pruritus [Recovering/Resolving]
  - Dry skin [Recovering/Resolving]
  - Skin exfoliation [Recovering/Resolving]
  - Ear pain [Recovering/Resolving]
  - Application site scab [Recovering/Resolving]
  - Application site pruritus [Recovering/Resolving]
  - Ear pruritus [Recovering/Resolving]
  - Dyspnoea [Recovering/Resolving]
  - Oropharyngeal pain [Recovering/Resolving]
  - Swelling face [Recovering/Resolving]
  - Ear swelling [Recovering/Resolving]
  - Product use in unapproved indication [Unknown]

NARRATIVE: CASE EVENT DATE: 20240901
